FAERS Safety Report 12693858 (Version 1)
Quarter: 2016Q3

REPORT INFORMATION
  Report Type: Spontaneous
  Country: US (occurrence: US)
  Receive Date: 20160829
  Receipt Date: 20160829
  Transmission Date: 20161109
  Serious: No
  Sender: FDA-Public Use
  Company Number: US-PFIZER INC-2016397084

PATIENT
  Age: 69 Year
  Sex: Male
  Weight: 76 kg

DRUGS (2)
  1. DILTIAZEM HCL [Suspect]
     Active Substance: DILTIAZEM HYDROCHLORIDE
     Dosage: 120 MG, UNK
  2. ALTACE [Suspect]
     Active Substance: RAMIPRIL
     Dosage: 5 MG, UNK

REACTIONS (6)
  - Feeling abnormal [Unknown]
  - Panic reaction [Not Recovered/Not Resolved]
  - Dizziness [Unknown]
  - Flushing [Recovering/Resolving]
  - Presyncope [Recovered/Resolved]
  - Agitation [Not Recovered/Not Resolved]

NARRATIVE: CASE EVENT DATE: 201608
